FAERS Safety Report 18163183 (Version 1)
Quarter: 2020Q3

REPORT INFORMATION
  Report Type: Report from Study
  Country: US (occurrence: US)
  Receive Date: 20200818
  Receipt Date: 20200818
  Transmission Date: 20201103
  Serious: Yes (Hospitalization, Other)
  Sender: FDA-Public Use
  Company Number: US-BRISTOL-MYERS SQUIBB COMPANY-BMS-2020-065087

PATIENT
  Age: 67 Year
  Sex: Male
  Weight: 86.7 kg

DRUGS (3)
  1. NIVOLUMAB [Suspect]
     Active Substance: NIVOLUMAB
     Indication: BLADDER TRANSITIONAL CELL CARCINOMA
     Dosage: 480 MILLIGRAM
     Route: 042
     Dates: start: 20191203, end: 20200225
  2. CABOZANTINIB [Suspect]
     Active Substance: CABOZANTINIB
     Indication: BLADDER TRANSITIONAL CELL CARCINOMA
     Dosage: 20 MILLIGRAM, QD
     Route: 048
     Dates: start: 20191203, end: 20200324
  3. IPILIMUMAB [Suspect]
     Active Substance: IPILIMUMAB
     Indication: BLADDER TRANSITIONAL CELL CARCINOMA
     Dosage: 1 MILLIGRAM/KILOGRAM
     Route: 042
     Dates: start: 20191203, end: 20200204

REACTIONS (3)
  - Stomatitis [Not Recovered/Not Resolved]
  - Sialoadenitis [Not Recovered/Not Resolved]
  - Autoimmune thyroiditis [Not Recovered/Not Resolved]

NARRATIVE: CASE EVENT DATE: 20200421
